FAERS Safety Report 18039831 (Version 1)
Quarter: 2020Q3

REPORT INFORMATION
  Report Type: Spontaneous
  Country: CA (occurrence: US)
  Receive Date: 20200717
  Receipt Date: 20200717
  Transmission Date: 20201103
  Serious: No
  Sender: FDA-Public Use
  Company Number: CA-ACTELION-A-NJ2020-206947

PATIENT
  Age: 45 Year
  Sex: Female

DRUGS (6)
  1. CBD OIL [Concomitant]
     Active Substance: CANNABIDIOL\HERBALS
  2. OXYCODONE [Concomitant]
     Active Substance: OXYCODONE
  3. WARFARIN [Concomitant]
     Active Substance: WARFARIN
  4. UPTRAVI [Suspect]
     Active Substance: SELEXIPAG
     Dosage: 600 MCG, BID
     Route: 048
     Dates: start: 20200629
  5. UPTRAVI [Suspect]
     Active Substance: SELEXIPAG
     Indication: PULMONARY ARTERIAL HYPERTENSION
     Dosage: UNK
     Route: 048
     Dates: start: 20200615
  6. METHOTREXATE. [Concomitant]
     Active Substance: METHOTREXATE

REACTIONS (4)
  - Flushing [Recovering/Resolving]
  - Headache [Recovering/Resolving]
  - International normalised ratio increased [Recovering/Resolving]
  - Neck pain [Recovering/Resolving]

NARRATIVE: CASE EVENT DATE: 20200627
